FAERS Safety Report 20729415 (Version 1)
Quarter: 2022Q2

REPORT INFORMATION
  Report Type: Spontaneous
  Country: JP (occurrence: JP)
  Receive Date: 20220420
  Receipt Date: 20220420
  Transmission Date: 20220721
  Serious: Yes (Life-Threatening, Hospitalization, Other)
  Sender: FDA-Public Use
  Company Number: JP-MLMSERVICE-20220408-3493831-1

PATIENT
  Age: 59 Year
  Sex: Female

DRUGS (4)
  1. CARBOPLATIN [Suspect]
     Active Substance: CARBOPLATIN
     Indication: Ovarian cancer stage III
     Dosage: AUC - 6, MONTHLY, 2 CYCLICAL
  2. PACLITAXEL [Suspect]
     Active Substance: PACLITAXEL
     Indication: Ovarian cancer stage III
     Dosage: MONTHLY 180 MG/M^2
  3. BEVACIZUMAB [Suspect]
     Active Substance: BEVACIZUMAB
     Indication: Ovarian cancer stage III
  4. DEXAMETHASONE [Suspect]
     Active Substance: DEXAMETHASONE
     Indication: Ovarian cancer stage III
     Dosage: FIRST DAY OF MONTHLY TC CHEMOTHERAPY
     Route: 041

REACTIONS (2)
  - Cytomegalovirus colitis [Recovered/Resolved]
  - Febrile neutropenia [Recovered/Resolved]
